FAERS Safety Report 7378741-6 (Version None)
Quarter: 2011Q1

REPORT INFORMATION
  Report Type: 
  Country: None (occurrence: None)
  Receive Date: 20110328
  Receipt Date: 20110319
  Transmission Date: 20110831
  Serious: Yes (Other)
  Sender: FDA-Public Use
  Company Number: US-ABBOTT-08P-163-0441032-00

PATIENT
  Age: 45 Year
  Sex: Male

DRUGS (5)
  1. KALETRA [Suspect]
     Indication: ANTIRETROVIRAL THERAPY
  2. TRIMETHOPRIM [Concomitant]
     Indication: PRODUCT USED FOR UNKNOWN INDICATION
  3. SULFAMETHOXAZOLE [Concomitant]
     Indication: PRODUCT USED FOR UNKNOWN INDICATION
  4. TENOFOVIR DISOPROXIL FUMARATE [Concomitant]
     Indication: ANTIRETROVIRAL THERAPY
  5. TRIZIVIR [Concomitant]
     Indication: ANTIRETROVIRAL THERAPY

REACTIONS (5)
  - RETINAL TELANGIECTASIA [None]
  - BLINDNESS [None]
  - RETINAL PIGMENT EPITHELIOPATHY [None]
  - RETINAL DEPOSITS [None]
  - RETINAL TOXICITY [None]
